FAERS Safety Report 14783892 (Version 2)
Quarter: 2018Q2

REPORT INFORMATION
  Report Type: Spontaneous
  Country: US (occurrence: US)
  Receive Date: 20180420
  Receipt Date: 20180515
  Transmission Date: 20180711
  Serious: No
  Sender: FDA-Public Use
  Company Number: US-PFIZER INC-2017526432

PATIENT
  Age: 57 Year
  Sex: Female

DRUGS (5)
  1. DOCETAXEL. [Suspect]
     Active Substance: DOCETAXEL
     Indication: CHEMOTHERAPY
     Dosage: UNK, WEEKLY (08 CYCLES)
     Dates: start: 20130409, end: 20130607
  2. TAXOTERE [Suspect]
     Active Substance: DOCETAXEL
     Indication: CHEMOTHERAPY
     Dosage: UNK, WEEKLY (08 CYCLES)
  3. TAXOTERE [Suspect]
     Active Substance: DOCETAXEL
     Indication: BREAST CANCER FEMALE
  4. ELLENCE [Concomitant]
     Active Substance: EPIRUBICIN HYDROCHLORIDE
     Indication: CHEMOTHERAPY
     Dosage: UNK
  5. DOCETAXEL. [Suspect]
     Active Substance: DOCETAXEL
     Indication: BREAST CANCER FEMALE

REACTIONS (5)
  - Hair colour changes [Recovered/Resolved]
  - Madarosis [Recovered/Resolved]
  - Alopecia [Recovered/Resolved]
  - Hair texture abnormal [Recovered/Resolved]
  - Hair disorder [Recovered/Resolved]

NARRATIVE: CASE EVENT DATE: 201304
